FAERS Safety Report 6757025-0 (Version None)
Quarter: 2010Q2

REPORT INFORMATION
  Report Type: 
  Country: None (occurrence: None)
  Receive Date: 20100604
  Receipt Date: 20100525
  Transmission Date: 20101027
  Serious: Yes (Hospitalization, Other)
  Sender: FDA-Public Use
  Company Number: FR-ELI_LILLY_AND_COMPANY-FR201002002269

PATIENT
  Sex: Male

DRUGS (1)
  1. ZYPREXA [Suspect]
     Indication: DELUSION
     Dosage: 20 MG, DAILY (1/D)
     Route: 048
     Dates: start: 20090910, end: 20090918

REACTIONS (6)
  - ANAEMIA [None]
  - HYPOALBUMINAEMIA [None]
  - INTESTINAL POLYP [None]
  - LEUKOPENIA [None]
  - OEDEMA PERIPHERAL [None]
  - OFF LABEL USE [None]
